FAERS Safety Report 8356768-5 (Version None)
Quarter: 2012Q2

REPORT INFORMATION
  Report Type: 
  Country: None (occurrence: None)
  Receive Date: 20120514
  Receipt Date: 20120509
  Transmission Date: 20120825
  Serious: No
  Sender: FDA-Public Use
  Company Number: US-BAYER-2012-046456

PATIENT
  Age: 85 Year
  Sex: Female
  Weight: 67 kg

DRUGS (5)
  1. PAXIL [Concomitant]
  2. NAPROXEN SODIUM [Suspect]
     Indication: ARTHRALGIA
     Dosage: 1 U, QD
     Route: 048
     Dates: start: 20120101
  3. VITAMIN D [Concomitant]
  4. NAPROXEN SODIUM [Suspect]
     Dosage: 1 U, UNK
     Route: 048
     Dates: start: 20110501, end: 20120101
  5. LISINOPRIL [Concomitant]

REACTIONS (1)
  - NO ADVERSE EVENT [None]
